FAERS Safety Report 6343555-2 (Version None)
Quarter: 2009Q3

REPORT INFORMATION
  Report Type: 
  Country: None (occurrence: None)
  Receive Date: 20090908
  Receipt Date: 20090724
  Transmission Date: 20100115
  Serious: Yes (Hospitalization)
  Sender: FDA-Public Use
  Company Number: FR-PFIZER INC-2009264524

PATIENT
  Age: 69 Year

DRUGS (5)
  1. HYDROXYZINE HCL [Suspect]
     Indication: DEPRESSION
     Dosage: UNK
     Route: 048
     Dates: end: 20081031
  2. ESCITALOPRAM OXALATE [Suspect]
     Indication: DEPRESSION
     Dosage: UNK
     Dates: end: 20081031
  3. AMITRIPTYLINE HYDROCHLORIDE [Suspect]
     Indication: DEPRESSION
     Dosage: UNK
     Route: 048
     Dates: start: 20081023, end: 20081031
  4. RAMIPRIL [Suspect]
     Indication: HYPERTENSION
     Dosage: UNK
     Route: 048
     Dates: end: 20081031
  5. ZOLPIDEM [Concomitant]
     Dosage: UNK
     Route: 048
     Dates: end: 20081031

REACTIONS (1)
  - ATRIAL FIBRILLATION [None]
